FAERS Safety Report 5072619-9 (Version None)
Quarter: 2006Q3

REPORT INFORMATION
  Report Type: 
  Country: None (occurrence: None)
  Receive Date: 20060807
  Receipt Date: 20060714
  Transmission Date: 20061208
  Serious: Yes (Hospitalization)
  Sender: FDA-Public Use
  Company Number: AR-GLAXOSMITHKLINE-A0612555A

PATIENT
  Age: 34 Year
  Sex: Female

DRUGS (3)
  1. AROPAX [Suspect]
     Indication: DEPRESSION
     Dosage: 25MG PER DAY
     Route: 048
     Dates: start: 20060616, end: 20060708
  2. IRON [Concomitant]
  3. CLONAZEPAM [Concomitant]

REACTIONS (8)
  - ABDOMINAL PAIN [None]
  - DEHYDRATION [None]
  - DRUG EXPOSURE DURING PREGNANCY [None]
  - GASTROINTESTINAL TUBE INSERTION [None]
  - HYPOKALAEMIA [None]
  - HYPONATRAEMIA [None]
  - ILEUS [None]
  - VOMITING [None]
